FAERS Safety Report 20212255 (Version 1)
Quarter: 2021Q4

REPORT INFORMATION
  Report Type: Spontaneous
  Country: TR (occurrence: TR)
  Receive Date: 20211221
  Receipt Date: 20211221
  Transmission Date: 20220303
  Serious: Yes (Congenital Anomaly, Other)
  Sender: FDA-Public Use
  Company Number: TR-ABBVIE-21K-161-4202087-00

PATIENT
  Sex: Male

DRUGS (1)
  1. VALPROATE SODIUM [Suspect]
     Active Substance: VALPROATE SODIUM
     Indication: Maternal exposure timing unspecified
     Route: 064

REACTIONS (10)
  - Low birth weight baby [Unknown]
  - Body height below normal [Unknown]
  - Lip disorder [Unknown]
  - Deformity thorax [Unknown]
  - Hand deformity [Unknown]
  - Foetal anticonvulsant syndrome [Unknown]
  - Congenital nose malformation [Unknown]
  - Micrognathia [Unknown]
  - Arachnodactyly [Unknown]
  - Foetal exposure during pregnancy [Unknown]
